FAERS Safety Report 7960474-6 (Version None)
Quarter: 2011Q4

REPORT INFORMATION
  Report Type: 
  Country: None (occurrence: None)
  Receive Date: 20111206
  Receipt Date: 20111205
  Transmission Date: 20120403
  Serious: Yes (Life-Threatening)
  Sender: FDA-Public Use
  Company Number: PHHO2011CN018993

PATIENT
  Sex: Male
  Weight: 57.5 kg

DRUGS (15)
  1. FUROSEMIDE [Concomitant]
     Indication: CARDIAC FAILURE CHRONIC
     Dosage: 20 MG, QD
     Route: 048
     Dates: start: 20110417, end: 20111111
  2. TORSEMIDE [Concomitant]
     Indication: CARDIAC FAILURE CHRONIC
     Dosage: 20 MG, QD
     Route: 048
     Dates: start: 20110417
  3. CEFUROXIME [Concomitant]
     Indication: INFECTION PROPHYLAXIS
     Dosage: 1.5 G, BID
     Route: 042
     Dates: start: 20111114, end: 20111117
  4. CEFUROXIME [Concomitant]
     Dosage: 1.5 G, BID
     Route: 042
     Dates: start: 20111124, end: 20111128
  5. ASPIRIN [Concomitant]
     Indication: HYPERTENSION
     Dosage: 100 MG, QD
     Route: 048
     Dates: start: 20110417, end: 20111111
  6. ISOSORBIDE MONONITRATE [Concomitant]
     Indication: PROPHYLAXIS
     Dosage: 50 MG, QD
     Route: 048
     Dates: start: 20110417, end: 20111129
  7. POTASSIUM CHLORIDE [Concomitant]
     Indication: CARDIAC FAILURE CHRONIC
     Dosage: 1 G, TID
     Route: 048
     Dates: start: 20110417
  8. BISOPROLOL FUMARATE [Suspect]
     Indication: CARDIAC FAILURE CHRONIC
     Dosage: 3.75 MG, QD
     Route: 048
     Dates: start: 20111021, end: 20111111
  9. BISOPROLOL FUMARATE [Concomitant]
     Dosage: 1.25 MG, QD
     Route: 048
     Dates: start: 20111124
  10. ENALAPRIL MALEATE [Suspect]
     Indication: CARDIAC FAILURE CHRONIC
     Dosage: CODE NOT BROKEN
     Dates: start: 20110920, end: 20111111
  11. SPIRONOLACTONE [Concomitant]
     Indication: CARDIAC FAILURE CHRONIC
     Dosage: 20 MG, QD
     Dates: start: 20110417
  12. ENOXAPARIN [Concomitant]
     Indication: ANTICOAGULANT THERAPY
     Dosage: 0.4 ML, Q12H
     Dates: start: 20111114, end: 20111122
  13. ASCORBIC ACID [Concomitant]
     Indication: HEPATIC FUNCTION ABNORMAL
     Dosage: 100 MG, TID
     Dates: start: 20111122, end: 20111201
  14. BLINDED NO TREATMENT RECEIVED [Suspect]
     Indication: CARDIAC FAILURE CHRONIC
     Dosage: CODE NOT BROKEN
     Dates: start: 20110920, end: 20111111
  15. VALSARTAN [Suspect]
     Indication: CARDIAC FAILURE CHRONIC
     Dosage: CODE NOT BROKEN
     Dates: start: 20110920, end: 20111111

REACTIONS (4)
  - CONDUCTION DISORDER [None]
  - HYPERKALAEMIA [None]
  - ATRIOVENTRICULAR BLOCK COMPLETE [None]
  - DISEASE PROGRESSION [None]
